FAERS Safety Report 7599172 (Version 2)
Quarter: 2013Q4

REPORT INFORMATION
  Report Type: Spontaneous
  Country: US (occurrence: US)
  Receive Date: 20100921
  Receipt Date: 20131212
  Transmission Date: 20140711
  Serious: Yes (Hospitalization)
  Sender: FDA-Public Use
  Company Number: US-BIOGENIDEC-2010BI031669

PATIENT
  Age: 54 Year
  Sex: Female

DRUGS (1)
  1. TYSABRI [Suspect]
     Indication: MULTIPLE SCLEROSIS
     Route: 042
     Dates: start: 20090714, end: 20131030

REACTIONS (5)
  - Thyroid cancer [Recovered/Resolved]
  - Hysterectomy [Recovered/Resolved]
  - Respiratory arrest [Recovered/Resolved]
  - Pharyngeal oedema [Recovered/Resolved]
  - Thyroid neoplasm [Recovered/Resolved]
